FAERS Safety Report 7700158-2 (Version None)
Quarter: 2011Q3

REPORT INFORMATION
  Report Type: 
  Country: None (occurrence: None)
  Receive Date: 20110822
  Receipt Date: 20110819
  Transmission Date: 20111222
  Serious: No
  Sender: FDA-Public Use
  Company Number: US-PFIZER INC-2011192654

PATIENT
  Sex: Male

DRUGS (1)
  1. PROTONIX [Suspect]
     Indication: GASTRIC DISORDER
     Dosage: UNK,DAILY
     Route: 048
     Dates: start: 20110801, end: 20110801

REACTIONS (1)
  - DIARRHOEA [None]
